FAERS Safety Report 4770670-7 (Version None)
Quarter: 2005Q3

REPORT INFORMATION
  Report Type: 
  Country: None (occurrence: None)
  Receive Date: 20050915
  Receipt Date: 20050907
  Transmission Date: 20060218
  Serious: Yes (Death, Hospitalization)
  Sender: FDA-Public Use
  Company Number: US-JNJFOC-20050902231

PATIENT
  Age: 23 Year
  Sex: Male

DRUGS (7)
  1. ACETAMINOPHEN [Suspect]
     Route: 048
  2. ACETAMINOPHEN [Suspect]
     Route: 048
  3. ACETAMINOPHEN/DIPHENHYDRAMINE [Suspect]
     Route: 048
  4. DIPHENHYDRAMINE HCL [Suspect]
     Route: 048
  5. CLOMIPRAMINE HCL [Suspect]
     Route: 048
  6. ZOLPIDEM [Suspect]
  7. SERTRALINE HCL [Suspect]

REACTIONS (8)
  - ACUTE RESPIRATORY DISTRESS SYNDROME [None]
  - COMPLETED SUICIDE [None]
  - ELECTROCARDIOGRAM QRS COMPLEX PROLONGED [None]
  - ELECTROCARDIOGRAM QT CORRECTED INTERVAL PROLONGED [None]
  - HYPOTENSION [None]
  - INTENTIONAL MISUSE [None]
  - PYREXIA [None]
  - TRANSAMINASES INCREASED [None]
